FAERS Safety Report 13127913 (Version 1)
Quarter: 2017Q1

REPORT INFORMATION
  Report Type: Spontaneous
  Country: JP (occurrence: JP)
  Receive Date: 20170118
  Receipt Date: 20170118
  Transmission Date: 20170428
  Serious: Yes (Other)
  Sender: FDA-Public Use
  Company Number: GXJP2017JP000451

PATIENT
  Age: 72 Year
  Sex: Male

DRUGS (3)
  1. PROCYLIN [Concomitant]
     Active Substance: BERAPROST SODIUM
     Indication: SKIN ULCER
     Route: 048
  2. RIFAMPICIN CAPSULES [Suspect]
     Active Substance: RIFAMPIN
     Indication: SKIN ULCER
     Route: 048
  3. BAKTAR [Concomitant]
     Active Substance: SULFAMETHOXAZOLE\TRIMETHOPRIM
     Indication: SKIN ULCER
     Route: 048

REACTIONS (2)
  - Drug reaction with eosinophilia and systemic symptoms [Recovering/Resolving]
  - Disseminated intravascular coagulation [Recovering/Resolving]
